FAERS Safety Report 15789748 (Version 2)
Quarter: 2019Q1

REPORT INFORMATION
  Report Type: Spontaneous
  Country: US (occurrence: US)
  Receive Date: 20190104
  Receipt Date: 20190218
  Transmission Date: 20190417
  Serious: No
  Sender: FDA-Public Use
  Company Number: US-ASTRAZENECA-2018SF62445

PATIENT
  Age: 784 Month
  Sex: Female
  Weight: 68 kg

DRUGS (2)
  1. MELOXICAM. [Concomitant]
     Active Substance: MELOXICAM
     Indication: ARTHRITIS
     Dosage: 4 OR 5 YEARS AGO
     Route: 048
  2. SYMBICORT [Suspect]
     Active Substance: BUDESONIDE\FORMOTEROL FUMARATE DIHYDRATE
     Indication: ASTHMA
     Dosage: 80/4.5 MCG TWO INHALATIONS, TWO TIMES A DAY
     Route: 055
     Dates: start: 201810

REACTIONS (3)
  - Candida infection [Recovered/Resolved]
  - Device breakage [Unknown]
  - Intentional product misuse [Not Recovered/Not Resolved]

NARRATIVE: CASE EVENT DATE: 201811
